FAERS Safety Report 5940826-6 (Version None)
Quarter: 2008Q4

REPORT INFORMATION
  Report Type: 
  Country: None (occurrence: None)
  Receive Date: 20081104
  Receipt Date: 20081023
  Transmission Date: 20090506
  Serious: Yes (Hospitalization)
  Sender: FDA-Public Use
  Company Number: NL-ELI_LILLY_AND_COMPANY-NL200809004129

PATIENT
  Sex: Female
  Weight: 88 kg

DRUGS (2)
  1. LISPRO REGLISPRO [Suspect]
     Indication: TYPE 2 DIABETES MELLITUS
     Dosage: 8 U, EACH MORNING
     Route: 065
     Dates: start: 20061102
  2. LISPRO REGLISPRO [Suspect]
     Dosage: 12 U, EACH EVENING
     Route: 065
     Dates: start: 20061102

REACTIONS (1)
  - ATRIAL FIBRILLATION [None]
